FAERS Safety Report 6207777-3 (Version None)
Quarter: 2009Q2

REPORT INFORMATION
  Report Type: 
  Country: None (occurrence: None)
  Receive Date: 20090522
  Receipt Date: 20090515
  Transmission Date: 20091009
  Serious: Yes (Hospitalization, Other)
  Sender: FDA-Public Use
  Company Number: 1000005034

PATIENT
  Age: 75 Year
  Sex: Male
  Weight: 79.0166 kg

DRUGS (8)
  1. NEBIVOLOL HCL [Suspect]
     Dosage: 5 MG (5 MG), ORAL
     Route: 048
     Dates: start: 20081229, end: 20090128
  2. AXITINIB [Suspect]
     Indication: METASTATIC RENAL CELL CARCINOMA
     Dosage: 6 MG (3 MG, 2 IN 1 D), ORAL; 4 MG (2 MG, 2 IN 1 D), ORAL
     Route: 048
     Dates: start: 20090118, end: 20090128
  3. AXITINIB [Suspect]
     Indication: METASTATIC RENAL CELL CARCINOMA
     Dosage: 6 MG (3 MG, 2 IN 1 D), ORAL; 4 MG (2 MG, 2 IN 1 D), ORAL
     Route: 048
     Dates: start: 20090129
  4. AMLODIPINE BESYLATE [Suspect]
     Dosage: ORAL
     Route: 048
     Dates: start: 20081229
  5. IRBESARTAN [Suspect]
     Dosage: ORAL
     Route: 048
     Dates: start: 20081229
  6. FUROSEMIDE [Concomitant]
  7. GLIMEPIRIDE [Concomitant]
  8. HYDROCHLOROTHIAZIDE [Concomitant]

REACTIONS (7)
  - BLOOD CREATINE INCREASED [None]
  - BRADYCARDIA [None]
  - FATIGUE [None]
  - HAEMOGLOBIN DECREASED [None]
  - HYPERKALAEMIA [None]
  - HYPOTHYROIDISM [None]
  - WHITE BLOOD CELL COUNT INCREASED [None]
